FAERS Safety Report 17445161 (Version 3)
Quarter: 2020Q2

REPORT INFORMATION
  Report Type: Spontaneous
  Country: US (occurrence: US)
  Receive Date: 20200221
  Receipt Date: 20200623
  Transmission Date: 20200713
  Serious: No
  Sender: FDA-Public Use
  Company Number: US-PFIZER INC-2020076719

PATIENT
  Age: 77 Year
  Sex: Female
  Weight: 84.35 kg

DRUGS (2)
  1. XELJANZ XR [Suspect]
     Active Substance: TOFACITINIB CITRATE
     Indication: RHEUMATOID ARTHRITIS
     Dosage: 11 MG, 1X/DAY
  2. MOBID [Concomitant]
     Dosage: UNK

REACTIONS (2)
  - Influenza [Unknown]
  - Malaise [Recovered/Resolved]
